FAERS Safety Report 16187451 (Version 1)
Quarter: 2019Q2

REPORT INFORMATION
  Report Type: Spontaneous
  Country: GB (occurrence: GB)
  Receive Date: 20190412
  Receipt Date: 20190412
  Transmission Date: 20190711
  Serious: Yes (Other)
  Sender: FDA-Public Use
  Company Number: GB-ALKEM LABORATORIES LIMITED-GB-ALKEM-2018-04953

PATIENT
  Age: 48 Year
  Sex: Female
  Weight: 57 kg

DRUGS (2)
  1. QUETIAPINE FUMARATE. [Suspect]
     Active Substance: QUETIAPINE FUMARATE
     Indication: ACUTE PSYCHOSIS
     Dosage: 50 MG, OD
     Route: 048
     Dates: start: 20180403, end: 20180408
  2. HALOPERIDOL. [Suspect]
     Active Substance: HALOPERIDOL
     Indication: ACUTE PSYCHOSIS
     Dosage: 1 MG, PRN, HAD 2 DOSES ON 2/4/18 ONLY, AS NECESSARY
     Route: 030
     Dates: start: 20180402, end: 20180408

REACTIONS (1)
  - Agranulocytosis [Recovered/Resolved]

NARRATIVE: CASE EVENT DATE: 20180408
